FAERS Safety Report 4741546-6 (Version None)
Quarter: 2005Q3

REPORT INFORMATION
  Report Type: 
  Country: None (occurrence: None)
  Receive Date: 20050808
  Receipt Date: 20050711
  Transmission Date: 20060218
  Serious: Yes (Disabling)
  Sender: FDA-Public Use
  Company Number: 032-28

PATIENT
  Age: 62 Year
  Sex: Female

DRUGS (7)
  1. TEVETEN [Suspect]
     Indication: HYPERTENSION
     Dosage: 600 MG QD PO
     Route: 048
     Dates: start: 20050424, end: 20050624
  2. LANSOPRAZOLE [Concomitant]
  3. PARACETAMOL [Concomitant]
  4. CODEINE [Concomitant]
  5. ASPIRIN, CAFFEINE, PARACETAMOL [Concomitant]
  6. OXAZEPAM [Concomitant]
  7. PREDNISOLONE [Concomitant]

REACTIONS (5)
  - ARTHRALGIA [None]
  - DIZZINESS [None]
  - HEADACHE [None]
  - JOINT SWELLING [None]
  - LETHARGY [None]
